FAERS Safety Report 16814828 (Version 1)
Quarter: 2019Q3

REPORT INFORMATION
  Report Type: Spontaneous
  Country: US (occurrence: US)
  Receive Date: 20190917
  Receipt Date: 20190917
  Transmission Date: 20191005
  Serious: No
  Sender: FDA-Public Use
  Company Number: US-ALLERGAN-1851054US

PATIENT
  Age: 86 Year
  Sex: Female

DRUGS (11)
  1. FLEET ENEMA [Concomitant]
     Active Substance: SODIUM PHOSPHATE, DIBASIC\SODIUM PHOSPHATE, MONOBASIC
     Indication: IRRITABLE BOWEL SYNDROME
     Dosage: UNK
  2. LINZESS [Suspect]
     Active Substance: LINACLOTIDE
     Dosage: 72 ?G, QD
     Route: 048
     Dates: start: 20181011
  3. MIRALAX [Concomitant]
     Active Substance: POLYETHYLENE GLYCOL 3350
     Dosage: ONE TEASPOON
  4. LINZESS [Suspect]
     Active Substance: LINACLOTIDE
     Dosage: ACTUAL: TWO 72 MCG
     Route: 048
     Dates: start: 20181019
  5. LINZESS [Suspect]
     Active Substance: LINACLOTIDE
     Dosage: ACTUAL: TWO 72 MCG
     Route: 048
     Dates: start: 201810
  6. PRUNE JUICE [Concomitant]
     Indication: IRRITABLE BOWEL SYNDROME
     Dosage: UNK
  7. PRUNES [Concomitant]
     Indication: IRRITABLE BOWEL SYNDROME
     Dosage: UNK
  8. LINZESS [Suspect]
     Active Substance: LINACLOTIDE
     Indication: IRRITABLE BOWEL SYNDROME
     Dosage: 290 ?G, QD
     Route: 048
  9. LINZESS [Suspect]
     Active Substance: LINACLOTIDE
     Dosage: ACTUAL: THREE 72MCG LINZESS PILLS A DAY
     Route: 048
     Dates: start: 20181023
  10. STOOL SOFTENER (DOCUSATE) [Concomitant]
     Active Substance: DOCUSATE
     Indication: IRRITABLE BOWEL SYNDROME
     Dosage: UNK
  11. OTHER UNSPECIFIED MEDICATIONS [Concomitant]
     Active Substance: UNSPECIFIED INGREDIENT

REACTIONS (6)
  - Feeling abnormal [Unknown]
  - Drug ineffective [Unknown]
  - Incorrect dose administered [Unknown]
  - Off label use [Unknown]
  - Pain [Unknown]
  - Muscle spasms [Not Recovered/Not Resolved]

NARRATIVE: CASE EVENT DATE: 20181023
